FAERS Safety Report 12665984 (Version 2)
Quarter: 2016Q3

REPORT INFORMATION
  Report Type: Spontaneous
  Country: US (occurrence: US)
  Receive Date: 20160818
  Receipt Date: 20160915
  Transmission Date: 20161109
  Serious: Yes (Other)
  Sender: FDA-Public Use
  Company Number: US-009507513-1608USA005975

PATIENT
  Age: 31 Year
  Sex: Female
  Weight: 76.19 kg

DRUGS (1)
  1. NEXPLANON [Suspect]
     Active Substance: ETONOGESTREL
     Indication: CONTRACEPTION
     Dosage: 1 DF, UNK
     Dates: start: 20130710, end: 20160713

REACTIONS (6)
  - Ectopic pregnancy termination [Recovered/Resolved]
  - Vaginal haemorrhage [Recovered/Resolved]
  - Pregnancy with contraceptive device [Recovered/Resolved]
  - Ectopic pregnancy with contraceptive device [Recovered/Resolved]
  - Incorrect drug administration duration [Recovered/Resolved]
  - Unintended pregnancy [Recovered/Resolved]

NARRATIVE: CASE EVENT DATE: 201607
